FAERS Safety Report 15700908 (Version 1)
Quarter: 2018Q4

REPORT INFORMATION
  Report Type: Spontaneous
  Country: IN (occurrence: US)
  Receive Date: 20181207
  Receipt Date: 20181207
  Transmission Date: 20190205
  Serious: No
  Sender: FDA-Public Use
  Company Number: IN-ANIPHARMA-2018-US-003720

PATIENT
  Age: 38 Year
  Sex: Female

DRUGS (1)
  1. VANCOMYCIN HYDROCHLORIDE (NON-SPECIFIC) [Suspect]
     Active Substance: VANCOMYCIN HYDROCHLORIDE
     Indication: PRODUCT USED FOR UNKNOWN INDICATION
     Route: 065

REACTIONS (1)
  - Hypersensitivity [Unknown]
